FAERS Safety Report 23217359 (Version 1)
Quarter: 2023Q4

REPORT INFORMATION
  Report Type: Spontaneous
  Country: US (occurrence: US)
  Receive Date: 20231122
  Receipt Date: 20231122
  Transmission Date: 20240110
  Serious: No
  Sender: FDA-Public Use
  Company Number: US-LEX-000056

PATIENT
  Sex: Female
  Weight: 59.421 kg

DRUGS (4)
  1. INPEFA [Suspect]
     Active Substance: SOTAGLIFLOZIN
     Indication: Hospitalisation
     Dosage: BEFORE FIRST MEAL
     Route: 048
     Dates: start: 20230929, end: 20231010
  2. PREDNISONE [Suspect]
     Active Substance: PREDNISONE
     Dates: start: 20230929, end: 20231003
  3. PANTOPRAZOLE [Concomitant]
     Active Substance: PANTOPRAZOLE
  4. LEVOTHYROXINE [Concomitant]
     Active Substance: LEVOTHYROXINE

REACTIONS (2)
  - Cognitive disorder [Unknown]
  - Off label use [Unknown]
